FAERS Safety Report 22137007 (Version 1)
Quarter: 2023Q1

REPORT INFORMATION
  Report Type: Spontaneous
  Country: US (occurrence: US)
  Receive Date: 20230324
  Receipt Date: 20230324
  Transmission Date: 20230418
  Serious: No
  Sender: FDA-Public Use
  Company Number: US-BRISTOL-MYERS SQUIBB COMPANY-2023-042794

PATIENT
  Age: 78 Year
  Sex: Male

DRUGS (1)
  1. REVLIMID [Suspect]
     Active Substance: LENALIDOMIDE
     Indication: Plasma cell myeloma
     Dosage: FREQ: TAKE 1 CAPSULE BY MOUTH DAILY ON DAYS 1-14 OF 21 DAY CYCLE
     Route: 048
     Dates: start: 20210522

REACTIONS (3)
  - Constipation [Unknown]
  - Bowel movement irregularity [Unknown]
  - Off label use [Unknown]
